FAERS Safety Report 5085685-1 (Version None)
Quarter: 2006Q3

REPORT INFORMATION
  Report Type: 
  Country: None (occurrence: None)
  Receive Date: 20060822
  Receipt Date: 20060810
  Transmission Date: 20061208
  Serious: Yes (Hospitalization)
  Sender: FDA-Public Use
  Company Number: US-JNJFOC-20060802937

PATIENT
  Sex: Female
  Weight: 78.47 kg

DRUGS (5)
  1. DURAGESIC-100 [Suspect]
     Indication: PAIN
     Route: 062
  2. XANAX [Concomitant]
     Indication: STRESS
     Route: 048
  3. NEURONTIN [Concomitant]
     Indication: PAIN
     Route: 048
  4. PRILOSEC [Concomitant]
     Indication: GASTROOESOPHAGEAL REFLUX DISEASE
     Route: 048
  5. SEROQUEL [Concomitant]
     Indication: INSOMNIA

REACTIONS (6)
  - AMNESIA [None]
  - FATIGUE [None]
  - HYPERSOMNIA [None]
  - MALAISE [None]
  - MYOCARDIAL INFARCTION [None]
  - WEIGHT INCREASED [None]
